FAERS Safety Report 9329451 (Version 1)
Quarter: 2013Q2

REPORT INFORMATION
  Report Type: Spontaneous
  Country: US (occurrence: US)
  Receive Date: 20130604
  Receipt Date: 20130604
  Transmission Date: 20140414
  Serious: No
  Sender: FDA-Public Use
  Company Number: US-SANOFI-AVENTIS-2012SA093220

PATIENT
  Age: 68 Year
  Sex: Female

DRUGS (6)
  1. LANTUS SOLOSTAR [Suspect]
     Indication: TYPE 2 DIABETES MELLITUS
     Dosage: DOSE:26 UNIT(S)
     Dates: start: 201212
  2. SOLOSTAR [Suspect]
     Dates: start: 201212
  3. VALIUM [Concomitant]
  4. LIBRIUM ^HOFFMANN^ [Concomitant]
  5. GLYBURIDE [Concomitant]
  6. METFORMIN [Concomitant]

REACTIONS (6)
  - Chest pain [Unknown]
  - Weight decreased [Unknown]
  - Blood glucose increased [Unknown]
  - Headache [Unknown]
  - Stress [Unknown]
  - Feeling abnormal [Unknown]
